FAERS Safety Report 19760640 (Version 1)
Quarter: 2021Q3

REPORT INFORMATION
  Report Type: Other
  Country: CA (occurrence: CA)
  Receive Date: 20210830
  Receipt Date: 20210830
  Transmission Date: 20211014
  Serious: Yes (Hospitalization)
  Sender: FDA-Public Use
  Company Number: CA-CELLTRION INC.-2021CA011503

PATIENT

DRUGS (12)
  1. RITUXIMAB. [Suspect]
     Active Substance: RITUXIMAB
     Indication: GRANULOMATOSIS WITH POLYANGIITIS
     Dosage: 750.0 MG, 1 EVERY 1 WEEKS
     Route: 042
  2. PANTOLOC [Concomitant]
     Active Substance: PANTOPRAZOLE SODIUM
     Dosage: 40.0 MILLIGRAM, EVERY 1 DAYS
     Route: 065
  3. PREDNISONE. [Concomitant]
     Active Substance: PREDNISONE
     Dosage: 40.0 MILLIGRAM, EVERY 1 DAYS
     Route: 065
  4. SENOKOT [Concomitant]
     Active Substance: SENNOSIDES
     Dosage: 1.0 DOSAGE FORM, AS REQUIRED
     Route: 065
  5. LASIX [Concomitant]
     Active Substance: FUROSEMIDE
     Dosage: 1.0 DOSAGE FORM
     Route: 065
  6. SULFATRIM [Concomitant]
     Active Substance: SULFAMETHOXAZOLE\TRIMETHOPRIM
     Indication: ANTIBIOTIC PROPHYLAXIS
     Dosage: 1.0 DOSAGE FORM
     Route: 065
  7. FERROUS FUMARATE [Concomitant]
     Active Substance: FERROUS FUMARATE
     Dosage: 300 MILLIGRAM, EVERY 1 DAYS
     Route: 065
  8. FOLIC ACID. [Concomitant]
     Active Substance: FOLIC ACID
     Dosage: 5.0 MILLIGRAM, EVERY 1 DAYS
     Route: 065
  9. SYNTHROID [Concomitant]
     Active Substance: LEVOTHYROXINE SODIUM
     Dosage: 1.0 DOSAGE FORM, EVERY 1 DAYS
     Route: 065
  10. OXYCONTIN [Concomitant]
     Active Substance: OXYCODONE HYDROCHLORIDE
     Dosage: 1.0 DOSAGE FORM
     Route: 065
  11. VITAMIN B12 [Concomitant]
     Active Substance: CYANOCOBALAMIN
     Dosage: 1 DOSAGE FORM, 2 EVERY 1 WEEKS
     Route: 065
  12. OXYNEO [Concomitant]
     Active Substance: OXYCODONE
     Dosage: 1.0 DOSAGE FORM
     Route: 065

REACTIONS (4)
  - Oropharyngeal pain [Unknown]
  - Pyrexia [Unknown]
  - White blood cell count increased [Unknown]
  - Sepsis [Unknown]
